FAERS Safety Report 8544543 (Version 6)
Quarter: 2013Q2

REPORT INFORMATION
  Report Type: Report from Study
  Country: US (occurrence: US)
  Receive Date: 20120503
  Receipt Date: 20130617
  Transmission Date: 20140414
  Serious: Yes (Hospitalization)
  Sender: FDA-Public Use
  Company Number: US-ACTELION-A-US2012-64648

PATIENT
  Age: 69 Year
  Sex: Female

DRUGS (2)
  1. TRACLEER [Suspect]
     Indication: PULMONARY ARTERIAL HYPERTENSION
     Dosage: 125 MG, BID
     Route: 048
  2. COUMADIN [Concomitant]

REACTIONS (10)
  - Urinary tract infection [Unknown]
  - Dehydration [Unknown]
  - Neck pain [Unknown]
  - Back pain [Unknown]
  - Malaise [Unknown]
  - Dyspnoea [Unknown]
  - Headache [Unknown]
  - Oedema [Unknown]
  - Dizziness [Unknown]
  - Cough [Unknown]
